FAERS Safety Report 10665016 (Version 1)
Quarter: 2014Q4

REPORT INFORMATION
  Report Type: Spontaneous
  Country: FR (occurrence: FR)
  Receive Date: 20141219
  Receipt Date: 20141219
  Transmission Date: 20150529
  Serious: Yes (Other)
  Sender: FDA-Public Use
  Company Number: FR-ASTRAZENECA-2014SE95670

PATIENT
  Age: 15072 Day
  Sex: Female

DRUGS (8)
  1. TERCIAN [Interacting]
     Active Substance: CYAMEMAZINE
     Dosage: DOSE PROGRESSIVELY INCREASED FROM 25 MG 4 TIMES PER DAY TO 75 MG 4 TIMES PER DAY
     Route: 048
     Dates: start: 20140318, end: 20140401
  2. NOZINAN [Interacting]
     Active Substance: LEVOMEPROMAZINE
     Route: 048
     Dates: start: 20140401, end: 20140402
  3. XARELTO [Concomitant]
     Active Substance: RIVAROXABAN
  4. SERESTA [Concomitant]
     Active Substance: OXAZEPAM
  5. AOTAL [Concomitant]
     Active Substance: ACAMPROSATE CALCIUM
  6. ABILIFY [Concomitant]
     Active Substance: ARIPIPRAZOLE
     Dates: start: 20140331, end: 20140422
  7. XEROQUEL [Suspect]
     Active Substance: QUETIAPINE FUMARATE
     Indication: CONFUSIONAL STATE
     Route: 048
     Dates: start: 20130823
  8. XEROQUEL [Interacting]
     Active Substance: QUETIAPINE FUMARATE
     Indication: CONFUSIONAL STATE
     Route: 048
     Dates: start: 20140318

REACTIONS (3)
  - Electrocardiogram QT prolonged [Recovered/Resolved]
  - Drug interaction [Recovered/Resolved]
  - Treatment noncompliance [Recovered/Resolved]

NARRATIVE: CASE EVENT DATE: 20130823
